FAERS Safety Report 17386875 (Version 1)
Quarter: 2020Q1

REPORT INFORMATION
  Report Type: Spontaneous
  Country: DE (occurrence: DE)
  Receive Date: 20200206
  Receipt Date: 20200206
  Transmission Date: 20200409
  Serious: Yes (Other)
  Sender: FDA-Public Use
  Company Number: DE-BAUSCH-BL-2020-003123

PATIENT
  Age: 71 Year
  Sex: Female

DRUGS (1)
  1. OFLOXACIN-OPHTAL SINE 3MG/ML AUGENTROPFEN [Suspect]
     Active Substance: OFLOXACIN
     Indication: PRODUCT USED FOR UNKNOWN INDICATION
     Route: 047

REACTIONS (1)
  - Eye haemorrhage [Unknown]
